FAERS Safety Report 4693195-6 (Version None)
Quarter: 2005Q2

REPORT INFORMATION
  Report Type: 
  Country: None (occurrence: None)
  Receive Date: 20050617
  Receipt Date: 20050607
  Transmission Date: 20051028
  Serious: Yes (Other)
  Sender: FDA-Public Use
  Company Number: US-JNJFOC-20050603002

PATIENT
  Sex: Male

DRUGS (2)
  1. TYLENOL (GELTAB) [Suspect]
     Route: 049
  2. TYLENOL (GELTAB) [Suspect]
     Dosage: 320 MG Q 4-6 HOURS PRN
     Route: 049

REACTIONS (1)
  - HEPATIC ENZYME INCREASED [None]
